FAERS Safety Report 8825571 (Version 1)
Quarter: 2012Q4

REPORT INFORMATION
  Report Type: 
  Country: US (occurrence: US)
  Receive Date: 20121004
  Receipt Date: 20121004
  Transmission Date: 20130627
  Serious: Yes (Other)
  Sender: FDA-Public Use
  Company Number: PHEH2012US017982

PATIENT
  Age: 74 Year
  Sex: Female

DRUGS (28)
  1. RECLAST [Suspect]
     Indication: SENILE OSTEOPOROSIS
     Dosage: 5 mg annually
     Route: 042
     Dates: start: 201012
  2. METHOTREXATE [Concomitant]
     Dosage: 2.5 mg, QW
     Route: 048
  3. TYLENOL [Concomitant]
     Dosage: 3 UKN, UNK
  4. DEXLANSOPRAZOLE [Concomitant]
     Dosage: 60 mg, QD
  5. LANOXIN [Concomitant]
     Dosage: 0.25 mg, QD
  6. DILACOR XR [Concomitant]
     Dosage: 240 mg, QD
  7. NEXIUM [Concomitant]
     Dosage: 40 mg, QD
  8. ZETIA [Concomitant]
     Dosage: 10 mg, QD
  9. OXYBUTYNIN [Concomitant]
     Dosage: 5 mg, QD
  10. FOLIC ACID [Concomitant]
     Dosage: 4 mg, QD
  11. DIABETA [Concomitant]
     Dosage: 5 mg, QD
  12. REMICADE [Concomitant]
     Dosage: 3 mg/kg, 02 hours every 08 weeks
  13. REMICADE [Concomitant]
     Dosage: 4 mg/kg, 02 hours every 08 weeks
  14. BENADRYL [Concomitant]
     Dosage: 12.5 mg, UNK
     Route: 042
  15. SPIRIVA [Concomitant]
  16. GLUCOPHAGE [Concomitant]
     Dosage: 500 mg, UNK
  17. ACTOPLUS MET [Concomitant]
     Dosage: UNK UKN, UNK
  18. TRAMADOL [Concomitant]
     Dosage: UNK UKN, UNK
  19. PRAVACHOL [Concomitant]
     Dosage: UNK UKN, UNK
  20. CORTISONE [Concomitant]
     Dosage: In left knee
  21. ASMANEX [Concomitant]
  22. PREDNISONE [Concomitant]
     Dosage: 10 mg, QD
     Route: 048
  23. PREDNISONE [Concomitant]
     Dosage: 5 mg, QD
     Route: 048
  24. COUMADINE [Concomitant]
  25. DARVOCET-N [Concomitant]
     Dosage: 04 times a day as per need (QID, PRN),
     Route: 048
  26. VITAMIN D [Concomitant]
  27. STOOL SOFTENER [Concomitant]
  28. PHYSICAL THERAPY [Concomitant]
     Dosage: UNK UKN, UNK

REACTIONS (20)
  - Vitamin D deficiency [Unknown]
  - Haemoglobin decreased [Unknown]
  - Blood glucose increased [Unknown]
  - Blood iron decreased [Unknown]
  - Transferrin saturation decreased [Unknown]
  - Joint dislocation [Unknown]
  - Arthralgia [Unknown]
  - Carpal tunnel syndrome [Unknown]
  - Blood lactate dehydrogenase increased [Unknown]
  - Gingival bleeding [Unknown]
  - Glomerular filtration rate decreased [Unknown]
  - Iron deficiency anaemia [Unknown]
  - Myoclonus [Unknown]
  - Heart rate increased [Unknown]
  - Globulins increased [Unknown]
  - Red blood cell sedimentation rate increased [Recovered/Resolved]
  - C-reactive protein increased [Recovered/Resolved]
  - Fatigue [Unknown]
  - Pain [Unknown]
  - Blood calcium decreased [Unknown]
